FAERS Safety Report 7041780-9 (Version None)
Quarter: 2010Q4

REPORT INFORMATION
  Report Type: 
  Country: None (occurrence: None)
  Receive Date: 20101013
  Receipt Date: 20100618
  Transmission Date: 20110411
  Serious: No
  Sender: FDA-Public Use
  Company Number: US-ASTRAZENECA-2010SE28787

PATIENT
  Age: 25517 Day
  Sex: Male
  Weight: 81.6 kg

DRUGS (5)
  1. SYMBICORT [Suspect]
     Indication: ASTHMA
     Dosage: 160/4.5 MCG, 2 PUFFS QD
     Route: 055
     Dates: start: 20100528, end: 20100604
  2. SYMBICORT [Suspect]
     Dosage: 160/4.5 MCG, 2 PUFFS BID
     Route: 055
     Dates: start: 20100604
  3. PROVENTIL [Concomitant]
  4. LISINOPRIL [Concomitant]
  5. ATENOLOL [Concomitant]

REACTIONS (6)
  - ANXIETY [None]
  - ASTHMA [None]
  - CHEST DISCOMFORT [None]
  - DRY MOUTH [None]
  - INCORRECT DOSE ADMINISTERED [None]
  - WHEEZING [None]
